FAERS Safety Report 6031956-1 (Version None)
Quarter: 2009Q1

REPORT INFORMATION
  Report Type: 
  Country: None (occurrence: None)
  Receive Date: 20090108
  Receipt Date: 20081230
  Transmission Date: 20090719
  Serious: Yes (Other)
  Sender: FDA-Public Use
  Company Number: DE-SANOFI-SYNTHELABO-A04200801319

PATIENT
  Sex: Male
  Weight: 85 kg

DRUGS (3)
  1. ELOXATIN [Suspect]
     Indication: COLON CANCER METASTATIC
     Route: 041
     Dates: start: 20080101, end: 20080101
  2. FOLINIC ACID [Suspect]
     Indication: COLON CANCER METASTATIC
     Route: 041
     Dates: start: 20080101, end: 20080101
  3. FLUOROURACIL [Suspect]
     Indication: COLON CANCER METASTATIC
     Route: 041
     Dates: start: 20080101, end: 20080101

REACTIONS (3)
  - ACQUIRED DIAPHRAGMATIC EVENTRATION [None]
  - DIAPHRAGMATIC PARALYSIS [None]
  - DYSPNOEA EXERTIONAL [None]
